FAERS Safety Report 8484729-4 (Version None)
Quarter: 2012Q3

REPORT INFORMATION
  Report Type: 
  Country: None (occurrence: None)
  Receive Date: 20120703
  Receipt Date: 20120511
  Transmission Date: 20120928
  Serious: Yes (Other)
  Sender: FDA-Public Use
  Company Number: US-TEVA-338078USA

PATIENT
  Sex: Female

DRUGS (3)
  1. NUVIGIL [Suspect]
     Indication: DEPRESSION
     Route: 048
  2. PAROXETINE HCL [Concomitant]
     Indication: DEPRESSION
     Route: 048
  3. NUVIGIL [Suspect]
     Indication: SLEEP DISORDER

REACTIONS (4)
  - ENERGY INCREASED [None]
  - HALLUCINATION [None]
  - OFF LABEL USE [None]
  - INSOMNIA [None]
